FAERS Safety Report 4391923-0 (Version None)
Quarter: 2004Q3

REPORT INFORMATION
  Report Type: 
  Country: None (occurrence: None)
  Receive Date: 20040701
  Receipt Date: 20040513
  Transmission Date: 20050211
  Serious: Yes (Other)
  Sender: FDA-Public Use
  Company Number: US_020785655

PATIENT
  Sex: Female

DRUGS (1)
  1. BREVITAL SODIUM INJ [Suspect]

REACTIONS (1)
  - RESPIRATORY ARREST [None]
